FAERS Safety Report 9152324 (Version 2)
Quarter: 2013Q1

REPORT INFORMATION
  Report Type: Spontaneous
  Country: FR (occurrence: FR)
  Receive Date: 20130308
  Receipt Date: 20130312
  Transmission Date: 20140127
  Serious: Yes (Other)
  Sender: FDA-Public Use
  Company Number: FR-ROCHE-1199528

PATIENT
  Age: 75 Year
  Sex: Female

DRUGS (3)
  1. TAMIFLU [Suspect]
     Indication: INFLUENZA LIKE ILLNESS
     Route: 065
     Dates: start: 20130304, end: 20130304
  2. PARACETAMOL [Concomitant]
     Route: 065
     Dates: start: 20130304
  3. IBUPROFEN [Concomitant]
     Route: 065
     Dates: start: 20130304

REACTIONS (2)
  - Hallucination [Recovered/Resolved]
  - Insomnia [Recovering/Resolving]
